FAERS Safety Report 24717602 (Version 2)
Quarter: 2024Q4

REPORT INFORMATION
  Report Type: Spontaneous
  Country: IT (occurrence: IT)
  Receive Date: 20241210
  Receipt Date: 20241227
  Transmission Date: 20250114
  Serious: Yes (Other)
  Sender: TEVA
  Company Number: IT-TEVA-VS-3273157

PATIENT
  Age: 48 Year
  Sex: Female

DRUGS (6)
  1. PANTOPRAZOLE [Interacting]
     Active Substance: PANTOPRAZOLE
     Indication: Gastrooesophageal reflux disease
     Dosage: TAKEN APPROXIMATELY 30?MINUTES BEFORE LEVOTHYROXINE-SODIUM IN THE MORNING
     Route: 065
  2. LEVOTHYROXINE SODIUM [Concomitant]
     Active Substance: LEVOTHYROXINE SODIUM
     Indication: Autoimmune thyroiditis
     Dosage: SOFT GEL CAPSULE
     Route: 065
  3. LEVOTHYROXINE SODIUM [Concomitant]
     Active Substance: LEVOTHYROXINE SODIUM
     Indication: Autoimmune thyroiditis
     Dosage: SOFT GEL CAPSULE
     Route: 065
  4. LEVOTHYROXINE SODIUM [Interacting]
     Active Substance: LEVOTHYROXINE SODIUM
     Indication: Autoimmune thyroiditis
     Dosage: 2.5??G/KG/DAY
     Route: 065
  5. LEVOTHYROXINE SODIUM [Interacting]
     Active Substance: LEVOTHYROXINE SODIUM
     Indication: Autoimmune thyroiditis
     Dosage: 1.7??G/KG/DAY
     Route: 065
  6. LEVOTHYROXINE SODIUM [Interacting]
     Active Substance: LEVOTHYROXINE SODIUM
     Indication: Autoimmune thyroiditis
     Route: 065

REACTIONS (2)
  - Drug interaction [Unknown]
  - Malabsorption [Unknown]
